FAERS Safety Report 5937942-1 (Version None)
Quarter: 2008Q4

REPORT INFORMATION
  Report Type: 
  Country: None (occurrence: None)
  Receive Date: 20081031
  Receipt Date: 20081024
  Transmission Date: 20090506
  Serious: Yes (Death, Hospitalization, Other)
  Sender: FDA-Public Use
  Company Number: GB-PFIZER INC-2008063873

PATIENT
  Age: 21 Year
  Sex: Female

DRUGS (5)
  1. DOXORUBICIN HYDROCHLORIDE POWDER, STERILE [Suspect]
     Indication: PRIMARY MEDIASTINAL LARGE B-CELL LYMPHOMA
  2. PREDNISOLONE [Suspect]
     Indication: PRIMARY MEDIASTINAL LARGE B-CELL LYMPHOMA
  3. CYCLOPHOSPHAMIDE [Suspect]
     Indication: PRIMARY MEDIASTINAL LARGE B-CELL LYMPHOMA
  4. VINCRISTINE [Suspect]
     Indication: PRIMARY MEDIASTINAL LARGE B-CELL LYMPHOMA
  5. RITUXIMAB [Suspect]
     Indication: PRIMARY MEDIASTINAL LARGE B-CELL LYMPHOMA

REACTIONS (7)
  - ENCEPHALOPATHY [None]
  - HAEMORRHAGE [None]
  - HEPATIC FAILURE [None]
  - HEPATITIS B [None]
  - LUNG INJURY [None]
  - RENAL FAILURE [None]
  - SEPSIS [None]
